FAERS Safety Report 7512203-8 (Version None)
Quarter: 2011Q2

REPORT INFORMATION
  Report Type: 
  Country: None (occurrence: None)
  Receive Date: 20110531
  Receipt Date: 20101220
  Transmission Date: 20111010
  Serious: Yes (Hospitalization)
  Sender: FDA-Public Use
  Company Number: US-BAYER-201021939NA

PATIENT
  Age: 31 Year
  Sex: Female
  Weight: 75 kg

DRUGS (7)
  1. WARFARIN SODIUM [Concomitant]
     Dosage: 5 MG, QD
     Dates: start: 20090101
  2. YAZ [Suspect]
     Indication: UTERINE HAEMORRHAGE
  3. YAZ [Suspect]
     Indication: CONTRACEPTION
     Dosage: UNK
     Dates: start: 20081001, end: 20090115
  4. YAZ [Suspect]
     Indication: PREMENSTRUAL SYNDROME
  5. LOVENOX [Concomitant]
     Dosage: UNK
     Dates: start: 20090101
  6. ENOXAPARIN [Concomitant]
     Dosage: UNK
     Dates: start: 20090101
  7. DOXYCYCLIN [DOXYCYCLINE HYCLATE] [Concomitant]
     Indication: VAGINAL INFECTION
     Dosage: 100 MG, BID
     Dates: start: 20081001

REACTIONS (3)
  - THROMBOSIS [None]
  - PULMONARY EMBOLISM [None]
  - PAIN [None]
